FAERS Safety Report 16633584 (Version 1)
Quarter: 2019Q3

REPORT INFORMATION
  Report Type: Spontaneous
  Country: US (occurrence: US)
  Receive Date: 20190725
  Receipt Date: 20190725
  Transmission Date: 20191004
  Serious: Yes (Other)
  Sender: FDA-Public Use
  Company Number: None

PATIENT
  Age: 20 Year
  Sex: Female
  Weight: 96.3 kg

DRUGS (6)
  1. IMATINIB. [Suspect]
     Active Substance: IMATINIB MESYLATE
     Indication: CHRONIC MYELOID LEUKAEMIA
     Route: 048
     Dates: start: 20190507, end: 20190725
  2. VITAMIN D [Concomitant]
     Active Substance: VITAMIN D NOS
  3. LOPERAMIDE [Concomitant]
     Active Substance: LOPERAMIDE
  4. SPRYCEL [Concomitant]
     Active Substance: DASATINIB
  5. ONDANSETRON [Concomitant]
     Active Substance: ONDANSETRON
  6. IRON [Concomitant]
     Active Substance: IRON

REACTIONS (1)
  - Rash [None]

NARRATIVE: CASE EVENT DATE: 20190725
